FAERS Safety Report 24531666 (Version 1)
Quarter: 2024Q4

REPORT INFORMATION
  Report Type: Report from Study
  Country: CA (occurrence: CA)
  Receive Date: 20241022
  Receipt Date: 20241022
  Transmission Date: 20250115
  Serious: No
  Sender: ROCHE
  Company Number: CA-ROCHE-2634073

PATIENT
  Sex: Female

DRUGS (3)
  1. PULMOZYME [Suspect]
     Active Substance: DORNASE ALFA
     Indication: Dyspnoea
     Route: 048
     Dates: start: 20180613, end: 2022
  2. PULMOZYME [Suspect]
     Active Substance: DORNASE ALFA
     Indication: Bronchial disorder
  3. MYCOPHENOLATE MOFETIL [Suspect]
     Active Substance: MYCOPHENOLATE MOFETIL
     Indication: Fibrinous bronchitis
     Route: 065

REACTIONS (2)
  - Off label use [Unknown]
  - No adverse event [Unknown]
